FAERS Safety Report 12161258 (Version 2)
Quarter: 2016Q1

REPORT INFORMATION
  Report Type: Spontaneous
  Country: US (occurrence: US)
  Receive Date: 20160308
  Receipt Date: 20160311
  Transmission Date: 20160526
  Serious: No
  Sender: FDA-Public Use
  Company Number: US-BAYER-2016-045632

PATIENT
  Age: 46 Year
  Sex: Female

DRUGS (1)
  1. CLIMARA [Suspect]
     Active Substance: ESTRADIOL
     Indication: HORMONE REPLACEMENT THERAPY
     Dosage: 0.05 MG, QD
     Route: 062
     Dates: start: 201601

REACTIONS (5)
  - Application site pruritus [None]
  - Application site erythema [Recovering/Resolving]
  - Rash [None]
  - Product adhesion issue [None]
  - Application site pain [None]

NARRATIVE: CASE EVENT DATE: 2016
